FAERS Safety Report 19497581 (Version 1)
Quarter: 2021Q3

REPORT INFORMATION
  Report Type: Spontaneous
  Country: CN (occurrence: CN)
  Receive Date: 20210706
  Receipt Date: 20210706
  Transmission Date: 20211014
  Serious: Yes (Hospitalization, Other)
  Sender: FDA-Public Use
  Company Number: CN-BAYER-2021-168975

PATIENT
  Age: 31 Year
  Sex: Male
  Weight: 60 kg

DRUGS (8)
  1. IOPROMIDE. [Suspect]
     Active Substance: IOPROMIDE
     Indication: PELVIC FRACTURE
     Dosage: 210 ML, ONCE
     Route: 041
     Dates: start: 20210610, end: 20210610
  2. IOPROMIDE. [Suspect]
     Active Substance: IOPROMIDE
     Indication: ARTERIOGRAM
  3. ESOMEPRAZOLE SODIUM. [Concomitant]
     Active Substance: ESOMEPRAZOLE SODIUM
     Indication: PROPHYLAXIS AGAINST GASTROINTESTINAL ULCER
     Dosage: 40 MG, BID
     Route: 041
     Dates: start: 20210610, end: 20210619
  4. IOPROMIDE. [Suspect]
     Active Substance: IOPROMIDE
     Indication: THERAPEUTIC EMBOLISATION
  5. IOPROMIDE. [Suspect]
     Active Substance: IOPROMIDE
     Indication: AORTOGRAM
  6. RECOMBINANT HUMAN THROMBOPOIETIN [Concomitant]
     Active Substance: THROMBOPOIETIN
     Indication: PLATELET COUNT DECREASED
     Dosage: 15000 U, QD
     Route: 058
     Dates: start: 20210611, end: 20210617
  7. IOPROMIDE. [Suspect]
     Active Substance: IOPROMIDE
     Indication: SHOCK HAEMORRHAGIC
  8. IMIPENEM AND CILASTATIN SODIUM [Concomitant]
     Active Substance: CILASTATIN SODIUM\IMIPENEM
     Indication: ANTI-INFECTIVE THERAPY
     Dosage: 1 G, TID
     Route: 041
     Dates: start: 20210613, end: 20210623

REACTIONS (2)
  - Cholestasis [Recovering/Resolving]
  - Hepatitis B [None]

NARRATIVE: CASE EVENT DATE: 20210615
